FAERS Safety Report 10319206 (Version 2)
Quarter: 2015Q1

REPORT INFORMATION
  Report Type: Other
  Country: US (occurrence: US)
  Receive Date: 20140719
  Receipt Date: 20150319
  Transmission Date: 20150720
  Serious: Yes (Hospitalization, Other)
  Sender: FDA-Public Use
  Company Number: US-GSKPPD-2014GSK011674

PATIENT
  Age: 74 Year
  Sex: Male

DRUGS (9)
  1. ASPIRIN. [Concomitant]
     Active Substance: ASPIRIN
     Route: 048
  2. ALDACTONE [Concomitant]
     Active Substance: SPIRONOLACTONE
     Route: 048
  3. AVANDIA [Suspect]
     Active Substance: ROSIGLITAZONE MALEATE
     Indication: DIABETES MELLITUS
     Dosage: DATES OF AVANDIA USE COULD NOT BE CONFIRMED IN RECORDS REVIEWED
     Route: 048
  4. TRIDIL [Concomitant]
     Active Substance: NITROGLYCERIN
  5. DIGOXIN. [Concomitant]
     Active Substance: DIGOXIN
     Route: 048
  6. PLAVIX [Concomitant]
     Active Substance: CLOPIDOGREL BISULFATE
     Route: 048
  7. LASIX [Concomitant]
     Active Substance: FUROSEMIDE
  8. HYDRALAZINE [Concomitant]
     Active Substance: HYDRALAZINE HYDROCHLORIDE
     Route: 048
  9. TOPROL XL [Concomitant]
     Active Substance: METOPROLOL SUCCINATE
     Route: 048

REACTIONS (1)
  - Cardiac failure congestive [Recovered/Resolved]

NARRATIVE: CASE EVENT DATE: 20051006
